FAERS Safety Report 11069269 (Version 3)
Quarter: 2015Q2

REPORT INFORMATION
  Report Type: Report from Study
  Country: AU (occurrence: AU)
  Receive Date: 20150427
  Receipt Date: 20150515
  Transmission Date: 20150821
  Serious: Yes (Death, Life-Threatening, Hospitalization, Disabling, Other)
  Sender: FDA-Public Use
  Company Number: PHHY2015AU049640

PATIENT
  Age: 57 Year
  Sex: Male

DRUGS (11)
  1. FOLATE [Concomitant]
     Active Substance: FOLATE SODIUM
     Indication: PRODUCT USED FOR UNKNOWN INDICATION
     Dosage: 500 MG, QD (MANE)
     Route: 065
  2. CLOZARIL [Suspect]
     Active Substance: CLOZAPINE
     Indication: SCHIZOPHRENIA
     Dosage: 250 OT, UNK
     Route: 048
     Dates: start: 20000504
  3. ESOMEPRAZOLE [Concomitant]
     Active Substance: ESOMEPRAZOLE
     Indication: PRODUCT USED FOR UNKNOWN INDICATION
     Dosage: 40 MG, QD
     Route: 065
  4. FRUSEMIDE [Concomitant]
     Active Substance: FUROSEMIDE
     Indication: PRODUCT USED FOR UNKNOWN INDICATION
     Dosage: 40 MG, QD
     Route: 065
  5. CLOZARIL [Suspect]
     Active Substance: CLOZAPINE
     Dosage: 750 MG, UNK
     Route: 048
     Dates: start: 201401
  6. CLOZARIL [Suspect]
     Active Substance: CLOZAPINE
     Dosage: 325 MG, QD (AT NIGHT)
     Route: 048
     Dates: start: 2006
  7. TAMSULOSIN SANDOZ [Concomitant]
     Active Substance: TAMSULOSIN
     Indication: PRODUCT USED FOR UNKNOWN INDICATION
     Dosage: 400 UG, QD (MANE)
     Route: 065
  8. ASPIRIN. [Concomitant]
     Active Substance: ASPIRIN
     Indication: PRODUCT USED FOR UNKNOWN INDICATION
     Dosage: 100 MG, QD (MANE)
     Route: 065
  9. LANTUS [Concomitant]
     Active Substance: INSULIN GLARGINE
     Indication: TYPE 2 DIABETES MELLITUS
     Dosage: 22 U, QD
     Route: 065
  10. DIAZEPAM. [Concomitant]
     Active Substance: DIAZEPAM
     Indication: AGITATION
     Dosage: 5 MG, QD (NOCTE)
     Route: 065
  11. DIAZEPAM. [Concomitant]
     Active Substance: DIAZEPAM
     Indication: ANXIETY

REACTIONS (19)
  - Renal impairment [Fatal]
  - Nephropathy [Unknown]
  - Chronic kidney disease [Fatal]
  - Pulmonary arterial pressure increased [Unknown]
  - Myocardial ischaemia [Unknown]
  - Left atrial dilatation [Unknown]
  - Clostridium difficile colitis [Recovering/Resolving]
  - Diarrhoea [Recovered/Resolved]
  - Blood pressure decreased [Unknown]
  - Cardiac failure [Unknown]
  - Hydronephrosis [Unknown]
  - Mitral valve incompetence [Unknown]
  - Accidental overdose [Unknown]
  - Sinus tachycardia [Unknown]
  - Diabetes mellitus inadequate control [Not Recovered/Not Resolved]
  - Urinary retention [Unknown]
  - Anaemia [Unknown]
  - Ejection fraction decreased [Unknown]
  - Oedema [Unknown]

NARRATIVE: CASE EVENT DATE: 201401
